FAERS Safety Report 23038064 (Version 1)
Quarter: 2023Q4

REPORT INFORMATION
  Report Type: Spontaneous
  Country: US (occurrence: US)
  Receive Date: 20231006
  Receipt Date: 20231006
  Transmission Date: 20240109
  Serious: No
  Sender: FDA-Public Use
  Company Number: US-BAYER-2023A133904

PATIENT

DRUGS (2)
  1. LOTRIMIN ULTRA ATHLETES FOOT [Suspect]
     Active Substance: BUTENAFINE HYDROCHLORIDE
     Indication: Therapeutic skin care topical
     Dosage: 1 DF
     Route: 061
  2. LOTRIMIN ULTRA ATHLETES FOOT [Suspect]
     Active Substance: BUTENAFINE HYDROCHLORIDE
     Indication: Fungal foot infection

REACTIONS (1)
  - Drug ineffective [Not Recovered/Not Resolved]
